FAERS Safety Report 5733693-7 (Version None)
Quarter: 2008Q2

REPORT INFORMATION
  Report Type: 
  Country: None (occurrence: None)
  Receive Date: 20080509
  Receipt Date: 20080404
  Transmission Date: 20081010
  Serious: No
  Sender: FDA-Public Use
  Company Number: A0718088A

PATIENT
  Age: 2 Year
  Sex: Female
  Weight: 30 kg

DRUGS (2)
  1. ALTABAX [Suspect]
     Route: 061
  2. UNKNOWN [Concomitant]

REACTIONS (2)
  - BURNING SENSATION [None]
  - SCREAMING [None]
